FAERS Safety Report 4579820-9 (Version None)
Quarter: 2005Q1

REPORT INFORMATION
  Report Type: 
  Country: None (occurrence: None)
  Receive Date: 20050210
  Receipt Date: 20050127
  Transmission Date: 20050727
  Serious: Yes (Life-Threatening, Hospitalization)
  Sender: FDA-Public Use
  Company Number: OSCN-NO-0412S-0365

PATIENT
  Age: 58 Year
  Sex: Male

DRUGS (5)
  1. OMNISCAN [Suspect]
     Indication: MYELITIS
     Dosage: 16 ML, SINGLE DOSE, IV
     Route: 042
     Dates: start: 20041206, end: 20041206
  2. ADALAT [Concomitant]
  3. CIBENZOLINE SUCCINATE (CIBENOL) [Concomitant]
  4. PREDNISONE [Concomitant]
  5. FAMOTIDINE [Concomitant]

REACTIONS (9)
  - ALANINE AMINOTRANSFERASE INCREASED [None]
  - ASPARTATE AMINOTRANSFERASE INCREASED [None]
  - BODY TEMPERATURE INCREASED [None]
  - CHEST PAIN [None]
  - HEPATIC FUNCTION ABNORMAL [None]
  - JAUNDICE CHOLESTATIC [None]
  - MUSCLE TIGHTNESS [None]
  - SHOCK [None]
  - TREMOR [None]
